FAERS Safety Report 4310234-2 (Version None)
Quarter: 2004Q1

REPORT INFORMATION
  Report Type: 
  Country: None (occurrence: None)
  Receive Date: 20040301
  Receipt Date: 20040301
  Transmission Date: 20041129
  Serious: Yes (Other)
  Sender: FDA-Public Use
  Company Number: None

PATIENT
  Age: 36 Year
  Sex: Female
  Weight: 72.5755 kg

DRUGS (3)
  1. PAXIL [Suspect]
     Indication: ANXIETY
     Dates: start: 19960615, end: 20040228
  2. PAXIL [Suspect]
     Indication: DEPRESSION
     Dates: start: 19960615, end: 20040228
  3. PAXIL [Suspect]
     Indication: STRESS SYMPTOMS
     Dates: start: 19960615, end: 20040228

REACTIONS (5)
  - AMNESIA [None]
  - BALANCE DISORDER [None]
  - HEARING IMPAIRED [None]
  - MIGRAINE [None]
  - VISUAL ACUITY REDUCED [None]
